FAERS Safety Report 15758969 (Version 1)
Quarter: 2018Q4

REPORT INFORMATION
  Report Type: Spontaneous
  Country: GR (occurrence: GR)
  Receive Date: 20181225
  Receipt Date: 20181225
  Transmission Date: 20190205
  Serious: Yes (Death, Life-Threatening, Hospitalization, Other)
  Sender: FDA-Public Use
  Company Number: GR-BAXTER-2018BAX030678

PATIENT
  Age: 72 Year
  Sex: Female

DRUGS (12)
  1. ENDOXAN 1000 MG - POWDER FOR SOLUTION FOR INJECTION [Suspect]
     Active Substance: CYCLOPHOSPHAMIDE
     Indication: NON-HODGKIN^S LYMPHOMA
     Dosage: UNK UNK,UNK
     Route: 065
  2. RITUXIMAB. [Suspect]
     Active Substance: RITUXIMAB
     Indication: NON-HODGKIN^S LYMPHOMA
  3. VINCRISTINE SULFATE. [Suspect]
     Active Substance: VINCRISTINE SULFATE
     Indication: NON-HODGKIN^S LYMPHOMA
     Dosage: UNK UNK,UNK
     Route: 065
  4. DOXORUBICIN [Suspect]
     Active Substance: DOXORUBICIN
     Indication: NON-HODGKIN^S LYMPHOMA
     Dosage: UNK UNK,UNK
     Route: 065
  5. SULFAMETHOXAZOLE/TRIMETHOPRIM [Suspect]
     Active Substance: SULFAMETHOXAZOLE\TRIMETHOPRIM
     Indication: PROPHYLACTIC CHEMOTHERAPY
  6. PREDNISOLONE. [Suspect]
     Active Substance: PREDNISOLONE
     Indication: NON-HODGKIN^S LYMPHOMA
     Dosage: UNK UNK,UNK
     Route: 065
  7. MOXIFLOXACIN HYDROCHLORIDE. [Suspect]
     Active Substance: MOXIFLOXACIN HYDROCHLORIDE
     Indication: PROPHYLAXIS
     Dosage: 400 MG,QD
     Route: 065
  8. VORICONAZOLE. [Suspect]
     Active Substance: VORICONAZOLE
     Indication: BRONCHOPULMONARY ASPERGILLOSIS
     Dosage: 200 MG,UNK
     Route: 065
  9. RITUXIMAB. [Suspect]
     Active Substance: RITUXIMAB
     Indication: BRONCHOPULMONARY ASPERGILLOSIS
     Dosage: UNK UNK,UNK
     Route: 065
  10. VORICONAZOLE. [Suspect]
     Active Substance: VORICONAZOLE
     Indication: PNEUMOCYSTIS JIROVECII PNEUMONIA
     Dosage: 400 MG,UNK
     Route: 065
  11. SULFAMETHOXAZOLE/TRIMETHOPRIM [Suspect]
     Active Substance: SULFAMETHOXAZOLE\TRIMETHOPRIM
     Indication: BRONCHOPULMONARY ASPERGILLOSIS
  12. SULFAMETHOXAZOLE/TRIMETHOPRIM [Suspect]
     Active Substance: SULFAMETHOXAZOLE\TRIMETHOPRIM
     Indication: PNEUMOCYSTIS JIROVECII PNEUMONIA
     Dosage: SULPHAMETHOXAZOLE 400 MG, TRIMETHOPRIM 80 MG
     Route: 042

REACTIONS (17)
  - White blood cell count increased [Fatal]
  - Lung infiltration [Fatal]
  - Rales [Fatal]
  - Sinus tachycardia [Fatal]
  - Bronchopulmonary aspergillosis [Fatal]
  - Multiple organ dysfunction syndrome [Fatal]
  - C-reactive protein increased [Fatal]
  - Computerised tomogram abnormal [Fatal]
  - Pyrexia [Fatal]
  - Oxygen saturation decreased [Fatal]
  - Condition aggravated [Fatal]
  - Hypoxia [Fatal]
  - Pneumocystis jirovecii pneumonia [Fatal]
  - Drug ineffective [Unknown]
  - Computerised tomogram thorax abnormal [Fatal]
  - Tachypnoea [Fatal]
  - Dyspnoea [Fatal]
